FAERS Safety Report 25956959 (Version 1)
Quarter: 2025Q4

REPORT INFORMATION
  Report Type: Spontaneous
  Country: US (occurrence: US)
  Receive Date: 20251024
  Receipt Date: 20251024
  Transmission Date: 20260118
  Serious: Yes (Other)
  Sender: AMGEN
  Company Number: US-AMGEN-USASP2025208414

PATIENT

DRUGS (1)
  1. PROLIA [Suspect]
     Active Substance: DENOSUMAB
     Indication: Osteoporosis
     Dosage: UNK,
     Route: 065

REACTIONS (3)
  - Compression fracture [Unknown]
  - Fatigue [Unknown]
  - Foot fracture [Unknown]
